FAERS Safety Report 4666109-2 (Version None)
Quarter: 2005Q2

REPORT INFORMATION
  Report Type: 
  Country: None (occurrence: None)
  Receive Date: 20050519
  Receipt Date: 20050512
  Transmission Date: 20051028
  Serious: Yes (Life-Threatening, Hospitalization)
  Sender: FDA-Public Use
  Company Number: ES-GLAXOSMITHKLINE-B0381455A

PATIENT
  Age: 78 Year
  Sex: Male

DRUGS (4)
  1. ZOFRAN [Suspect]
     Indication: PREMEDICATION
     Route: 048
     Dates: start: 20040302, end: 20040302
  2. IRINOTECAN HCL [Suspect]
     Route: 065
     Dates: start: 20040302, end: 20040302
  3. ATROPINE [Concomitant]
     Indication: PREMEDICATION
     Dates: start: 20040302, end: 20040302
  4. DEXAMETHASONE [Concomitant]
     Indication: PREMEDICATION
     Dates: start: 20040302, end: 20040302

REACTIONS (1)
  - ATRIOVENTRICULAR BLOCK [None]
